FAERS Safety Report 18918055 (Version 1)
Quarter: 2021Q1

REPORT INFORMATION
  Report Type: Spontaneous
  Country: US (occurrence: US)
  Receive Date: 20210219
  Receipt Date: 20210219
  Transmission Date: 20210420
  Serious: No
  Sender: FDA-Public Use
  Company Number: US-PERRIGO-20US015090

PATIENT
  Age: 59 Year
  Sex: Male
  Weight: 74.83 kg

DRUGS (1)
  1. KETOCONAZOLE. [Suspect]
     Active Substance: KETOCONAZOLE
     Indication: TINEA VERSICOLOUR
     Dosage: 1 APPLICATION, SINGLE
     Route: 061
     Dates: start: 20201014, end: 20201014

REACTIONS (2)
  - Wrong technique in product usage process [Recovered/Resolved]
  - Dizziness [Recovered/Resolved]

NARRATIVE: CASE EVENT DATE: 20201014
